FAERS Safety Report 4747022-9 (Version None)
Quarter: 2005Q3

REPORT INFORMATION
  Report Type: 
  Country: None (occurrence: None)
  Receive Date: 20050815
  Receipt Date: 20050729
  Transmission Date: 20060218
  Serious: Yes (Other)
  Sender: FDA-Public Use
  Company Number: USA0507104172

PATIENT
  Sex: Female

DRUGS (1)
  1. ALIMTA [Suspect]
     Indication: NON-SMALL CELL LUNG CANCER

REACTIONS (1)
  - PLEURAL EFFUSION [None]
